FAERS Safety Report 7422199-5 (Version None)
Quarter: 2011Q2

REPORT INFORMATION
  Report Type: 
  Country: None (occurrence: None)
  Receive Date: 20110418
  Receipt Date: 20110407
  Transmission Date: 20111010
  Serious: Yes (Other)
  Sender: FDA-Public Use
  Company Number: US-CEPHALON-2010004034

PATIENT
  Sex: Female
  Weight: 114 kg

DRUGS (9)
  1. PROVIGIL [Suspect]
     Indication: SOMNOLENCE
     Route: 048
     Dates: start: 19920101
  2. BENADRYL [Concomitant]
     Indication: SLEEP DISORDER
     Dates: start: 20010101
  3. TEMAZEPAM [Concomitant]
     Indication: SLEEP DISORDER
     Route: 048
     Dates: start: 20010101
  4. LEVETIRACETAM [Concomitant]
     Indication: CONVULSION
     Route: 048
     Dates: start: 20090101
  5. DYAZIDE [Concomitant]
     Indication: FLUID RETENTION
     Route: 048
     Dates: start: 19910101
  6. METHYLSULFONYLMETHANE [Concomitant]
     Indication: ARTHRITIS
     Dates: start: 20100501
  7. MELATONIN [Concomitant]
     Indication: SLEEP DISORDER
     Route: 048
     Dates: start: 20090101
  8. SIMVASTATIN [Concomitant]
     Dates: start: 20100701
  9. LEVOTHYROXINE SODIUM [Concomitant]
     Indication: THYROID DISORDER
     Route: 048
     Dates: start: 20100701

REACTIONS (3)
  - DIABETES MELLITUS [None]
  - ANAEMIA [None]
  - DRUG TOLERANCE [None]
